FAERS Safety Report 4934705-0 (Version None)
Quarter: 2006Q1

REPORT INFORMATION
  Report Type: 
  Country: None (occurrence: None)
  Receive Date: 20060307
  Receipt Date: 20050930
  Transmission Date: 20060701
  Serious: Yes (Hospitalization, Disabling)
  Sender: FDA-Public Use
  Company Number: US-MERCK-0510USA01736

PATIENT
  Age: 51 Year
  Sex: Female
  Weight: 91 kg

DRUGS (4)
  1. VIOXX [Suspect]
     Indication: ARTHRITIS
     Route: 048
     Dates: start: 20020101
  2. VIOXX [Suspect]
     Route: 048
     Dates: start: 20021204
  3. VIOXX [Suspect]
     Indication: MUSCLE SPASMS
     Route: 048
     Dates: start: 20020101
  4. VIOXX [Suspect]
     Route: 048
     Dates: start: 20021204

REACTIONS (23)
  - ABDOMINAL PAIN [None]
  - ABDOMINAL PAIN UPPER [None]
  - ASTHENIA [None]
  - BACK PAIN [None]
  - CHEST PAIN [None]
  - COLONIC POLYP [None]
  - CORONARY ARTERY DISEASE [None]
  - DEPRESSION [None]
  - DYSLIPIDAEMIA [None]
  - DYSPNOEA [None]
  - DYSURIA [None]
  - EAR PAIN [None]
  - FATIGUE [None]
  - FLANK PAIN [None]
  - HAEMATURIA [None]
  - HEADACHE [None]
  - HYDRONEPHROSIS [None]
  - MYOCARDIAL INFARCTION [None]
  - NEPHROLITHIASIS [None]
  - OVERDOSE [None]
  - RENAL DISORDER [None]
  - THROMBOSIS [None]
  - URINARY TRACT INFECTION [None]
